FAERS Safety Report 8099029-4 (Version None)
Quarter: 2012Q1

REPORT INFORMATION
  Report Type: 
  Country: None (occurrence: None)
  Receive Date: 20120131
  Receipt Date: 20120119
  Transmission Date: 20120608
  Serious: Yes (Other)
  Sender: FDA-Public Use
  Company Number: ES-JNJFOC-20120112476

PATIENT
  Age: 89 Year
  Sex: Male

DRUGS (6)
  1. ADOLONTA RETARD 50 [Suspect]
     Indication: CONTUSION
     Route: 048
     Dates: start: 20110609, end: 20110611
  2. AVIDART [Concomitant]
     Indication: BENIGN PROSTATIC HYPERPLASIA
     Route: 065
     Dates: start: 20060101
  3. ACETAMINOPHEN [Suspect]
     Indication: CONTUSION
     Route: 065
     Dates: start: 20110609, end: 20110611
  4. DICLOFENAC [Suspect]
     Indication: CONTUSION
     Route: 048
     Dates: start: 20110609, end: 20110611
  5. COZAAR [Concomitant]
     Indication: HYPERTENSION
     Route: 065
     Dates: start: 20060101
  6. ACETAMINOPHEN [Suspect]
     Route: 065

REACTIONS (1)
  - RENAL FAILURE ACUTE [None]
